FAERS Safety Report 8354393-3 (Version None)
Quarter: 2012Q2

REPORT INFORMATION
  Report Type: 
  Country: None (occurrence: None)
  Receive Date: 20120511
  Receipt Date: 20120503
  Transmission Date: 20120825
  Serious: Yes (Hospitalization)
  Sender: FDA-Public Use
  Company Number: US-ASTRAZENECA-2012SE21968

PATIENT
  Age: 51 Year
  Sex: Male
  Weight: 108.9 kg

DRUGS (8)
  1. LISINOPRIL [Concomitant]
     Indication: BLOOD PRESSURE ABNORMAL
  2. XANAX [Concomitant]
     Indication: SLEEP DISORDER
  3. ASPIRIN [Concomitant]
     Indication: BLOOD PRESSURE ABNORMAL
  4. FLEXERIL [Concomitant]
     Indication: MUSCLE SPASMS
  5. PRILOSEC OTC [Suspect]
     Indication: GASTROOESOPHAGEAL REFLUX DISEASE
     Dosage: 40 MG OR 50 MG
     Route: 048
  6. NEXIUM [Suspect]
     Indication: GASTROOESOPHAGEAL REFLUX DISEASE
     Route: 048
  7. HYDROCHLOROTHIAZIDE [Concomitant]
     Indication: OEDEMA PERIPHERAL
  8. MULTI-VITAMINS [Concomitant]

REACTIONS (15)
  - INTENTIONAL DRUG MISUSE [None]
  - DIARRHOEA [None]
  - DRUG INEFFECTIVE [None]
  - GASTROOESOPHAGEAL REFLUX DISEASE [None]
  - HYPERTENSION [None]
  - LOCAL SWELLING [None]
  - ACCIDENT [None]
  - FEELING ABNORMAL [None]
  - ACTIVITIES OF DAILY LIVING IMPAIRED [None]
  - INTERVERTEBRAL DISC PROTRUSION [None]
  - MALAISE [None]
  - ABDOMINAL DISCOMFORT [None]
  - DYSPHAGIA [None]
  - APPENDICITIS PERFORATED [None]
  - OEDEMA PERIPHERAL [None]
